FAERS Safety Report 23645471 (Version 2)
Quarter: 2024Q3

REPORT INFORMATION
  Report Type: Spontaneous
  Country: US (occurrence: US)
  Receive Date: 20240319
  Receipt Date: 20240726
  Transmission Date: 20241016
  Serious: No
  Sender: SANOFI AVENTIS
  Company Number: US-SA-SAC20240313000517

PATIENT
  Age: 28 Year
  Sex: Female

DRUGS (29)
  1. DUPIXENT [Suspect]
     Active Substance: DUPILUMAB
     Indication: Asthma
     Dosage: 300 MG, QOW
     Route: 058
     Dates: start: 20210303
  2. ALBUTEROL SULFATE [Concomitant]
     Active Substance: ALBUTEROL SULFATE
     Dosage: UNK
  3. ALBUTEROL SULFATE [Concomitant]
     Active Substance: ALBUTEROL SULFATE
  4. AZELASTINE [Concomitant]
     Active Substance: AZELASTINE\AZELASTINE HYDROCHLORIDE
  5. AZELASTINE [Concomitant]
     Active Substance: AZELASTINE\AZELASTINE HYDROCHLORIDE
  6. CRYSELLE [Concomitant]
     Active Substance: ETHINYL ESTRADIOL\NORGESTREL
  7. CRYSELLE [Concomitant]
     Active Substance: ETHINYL ESTRADIOL\NORGESTREL
  8. FLUTICASONE [Concomitant]
     Active Substance: FLUTICASONE
  9. FLUTICASONE [Concomitant]
     Active Substance: FLUTICASONE
  10. IPRATROPIUM [Concomitant]
     Active Substance: IPRATROPIUM
  11. MONTELUKAST [Concomitant]
     Active Substance: MONTELUKAST SODIUM
  12. MONTELUKAST [Concomitant]
     Active Substance: MONTELUKAST SODIUM
  13. NAPROXEN [Concomitant]
     Active Substance: NAPROXEN
  14. NAPROXEN [Concomitant]
     Active Substance: NAPROXEN
  15. OMEPRAZOLE [Concomitant]
     Active Substance: OMEPRAZOLE
  16. OMEPRAZOLE [Concomitant]
     Active Substance: OMEPRAZOLE
  17. PREDNISONE [Concomitant]
     Active Substance: PREDNISONE
  18. PREDNISONE [Concomitant]
     Active Substance: PREDNISONE
  19. QULIPTA [Concomitant]
     Active Substance: ATOGEPANT
  20. QULIPTA [Concomitant]
     Active Substance: ATOGEPANT
  21. TRELEGY ELLIPTA [Concomitant]
     Active Substance: FLUTICASONE FUROATE\UMECLIDINIUM BROMIDE\VILANTEROL TRIFENATATE
  22. TRELEGY ELLIPTA [Concomitant]
     Active Substance: FLUTICASONE FUROATE\UMECLIDINIUM BROMIDE\VILANTEROL TRIFENATATE
  23. UBRELVY [Concomitant]
     Active Substance: UBROGEPANT
  24. UBRELVY [Concomitant]
     Active Substance: UBROGEPANT
  25. AMITRIPTYLINE [Concomitant]
     Active Substance: AMITRIPTYLINE
  26. AMITRIPTYLINE [Concomitant]
     Active Substance: AMITRIPTYLINE
     Dosage: UNK
  27. HYDROXYCHLOROQUINE SULFATE [Concomitant]
     Active Substance: HYDROXYCHLOROQUINE SULFATE
  28. HYDROXYCHLOROQUINE SULFATE [Concomitant]
     Active Substance: HYDROXYCHLOROQUINE SULFATE
  29. IPRATROPIUM BROMIDE [Concomitant]
     Active Substance: IPRATROPIUM BROMIDE\IPRATROPIUM BROMIDE ANHYDROUS

REACTIONS (5)
  - Influenza [Not Recovered/Not Resolved]
  - Impaired quality of life [Not Recovered/Not Resolved]
  - Asthma [Not Recovered/Not Resolved]
  - Injection site pain [Not Recovered/Not Resolved]
  - Drug ineffective [Unknown]

NARRATIVE: CASE EVENT DATE: 20240101
